FAERS Safety Report 20682478 (Version 1)
Quarter: 2022Q2

REPORT INFORMATION
  Report Type: Spontaneous
  Country: US (occurrence: None)
  Receive Date: 20220407
  Receipt Date: 20220407
  Transmission Date: 20220721
  Serious: No
  Sender: FDA-Public Use
  Company Number: 2022A127360

PATIENT
  Age: 70 Year
  Sex: Female
  Weight: 63 kg

DRUGS (2)
  1. PULMICORT FLEXHALER [Suspect]
     Active Substance: BUDESONIDE
     Indication: Asthma
     Dosage: 180 MCG 120 INHALATION INHALER TWO PUFFS TWICE A DAY
     Route: 055
     Dates: start: 2019
  2. PULMICORT FLEXHALER [Suspect]
     Active Substance: BUDESONIDE
     Indication: Lung disorder
     Dosage: 180 MCG 120 INHALATION INHALER TWO PUFFS TWICE A DAY
     Route: 055
     Dates: start: 2019

REACTIONS (3)
  - Pulmonary pain [Unknown]
  - Intentional device misuse [Unknown]
  - Product packaging quantity issue [Unknown]

NARRATIVE: CASE EVENT DATE: 20220319
